FAERS Safety Report 4899256-0 (Version None)
Quarter: 2006Q1

REPORT INFORMATION
  Report Type: 
  Country: None (occurrence: None)
  Receive Date: 20060202
  Receipt Date: 20050725
  Transmission Date: 20060701
  Serious: Yes (Hospitalization)
  Sender: FDA-Public Use
  Company Number: FR-ROCHE-411772

PATIENT
  Age: 56 Year
  Sex: Male
  Weight: 60 kg

DRUGS (17)
  1. MYCOPHENOLATE MOFETIL [Suspect]
     Route: 048
     Dates: start: 20050708
  2. MYCOPHENOLATE MOFETIL [Suspect]
     Route: 048
     Dates: end: 20050929
  3. MYCOPHENOLATE MOFETIL [Suspect]
     Route: 048
     Dates: start: 20050930
  4. DACLIZUMAB [Suspect]
     Route: 042
     Dates: start: 20050708, end: 20050708
  5. DACLIZUMAB [Suspect]
     Route: 042
     Dates: start: 20050722, end: 20050722
  6. CYCLOSPORINE [Suspect]
     Route: 048
     Dates: start: 20050710
  7. CYCLOSPORINE [Suspect]
     Route: 048
  8. CYCLOSPORINE [Suspect]
     Route: 048
  9. SOLUPRED [Suspect]
     Route: 048
     Dates: start: 20050708
  10. SOLUPRED [Suspect]
     Route: 048
  11. ZELITREX [Suspect]
     Indication: DRUG USE FOR UNKNOWN INDICATION
     Route: 048
     Dates: start: 20050711
  12. BACTRIM [Concomitant]
     Dates: start: 20050712
  13. AMLOR [Concomitant]
     Route: 048
     Dates: start: 20050712
  14. MOPRAL [Concomitant]
     Route: 048
     Dates: start: 20050708
  15. SPECIAFOLDINE [Concomitant]
  16. ATARAX [Concomitant]
  17. QUESTRAN [Concomitant]

REACTIONS (8)
  - CATHETER RELATED INFECTION [None]
  - CHOLESTASIS [None]
  - CYTOLYTIC HEPATITIS [None]
  - INFLAMMATION [None]
  - JAUNDICE [None]
  - NOSOCOMIAL INFECTION [None]
  - PYELONEPHRITIS [None]
  - URINARY TRACT INFECTION PSEUDOMONAL [None]
